FAERS Safety Report 7651461-6 (Version None)
Quarter: 2011Q3

REPORT INFORMATION
  Report Type: 
  Country: None (occurrence: None)
  Receive Date: 20110802
  Receipt Date: 20110727
  Transmission Date: 20111222
  Serious: Yes (Death)
  Sender: FDA-Public Use
  Company Number: PHHY2011US65691

PATIENT
  Age: 54 Year
  Sex: Male

DRUGS (4)
  1. TARCEVA [Concomitant]
  2. ZOMETA [Suspect]
  3. GEMZAR [Concomitant]
  4. XELODA [Concomitant]

REACTIONS (1)
  - NEOPLASM MALIGNANT [None]
